FAERS Safety Report 14627411 (Version 1)
Quarter: 2018Q1

REPORT INFORMATION
  Report Type: Spontaneous
  Country: DE (occurrence: DE)
  Receive Date: 20180312
  Receipt Date: 20180312
  Transmission Date: 20180509
  Serious: Yes (Hospitalization)
  Sender: FDA-Public Use
  Company Number: DE-INCYTE CORPORATION-2018IN002267

PATIENT

DRUGS (3)
  1. JAKAVI [Suspect]
     Active Substance: RUXOLITINIB
     Indication: MYELOFIBROSIS
     Dosage: 15 MG, BID
     Route: 065
  2. JAKAVI [Suspect]
     Active Substance: RUXOLITINIB
     Dosage: 25 MG, BID
     Route: 065
  3. JAKAVI [Suspect]
     Active Substance: RUXOLITINIB
     Dosage: 10 MG, BID (20 MG DAILY)
     Route: 065

REACTIONS (15)
  - Oedema [Unknown]
  - Swelling [Unknown]
  - Weight increased [Unknown]
  - Burning sensation [Unknown]
  - Haemoglobin decreased [Unknown]
  - Chromaturia [Unknown]
  - Disturbance in attention [Unknown]
  - Dyspnoea [Unknown]
  - Influenza [Unknown]
  - Dehydration [Unknown]
  - Hypersensitivity [Unknown]
  - Confusional state [Unknown]
  - Eye disorder [Unknown]
  - Cardiac disorder [Unknown]
  - Lymphoedema [Unknown]
